FAERS Safety Report 6779996-9 (Version None)
Quarter: 2010Q2

REPORT INFORMATION
  Report Type: 
  Country: None (occurrence: None)
  Receive Date: 20100618
  Receipt Date: 20100615
  Transmission Date: 20101027
  Serious: Yes (Life-Threatening, Hospitalization)
  Sender: FDA-Public Use
  Company Number: FR-GILEAD-2010-0029124

PATIENT
  Sex: Female

DRUGS (6)
  1. ATRIPLA [Suspect]
     Indication: HIV INFECTION
     Dates: start: 20100101, end: 20100420
  2. TRUVADA [Suspect]
     Indication: HIV INFECTION
     Route: 048
     Dates: start: 20091120, end: 20100101
  3. EFAVIRENZ [Suspect]
     Indication: HIV INFECTION
     Route: 048
     Dates: start: 20091120, end: 20100101
  4. COZAAR [Concomitant]
     Indication: HYPERTENSION
     Dates: start: 20090101
  5. ACETAMINOPHEN [Concomitant]
  6. EXTENCILLINE [Concomitant]
     Indication: SYPHILIS

REACTIONS (3)
  - HEPATIC ENCEPHALOPATHY [None]
  - HEPATITIS FULMINANT [None]
  - LIVER TRANSPLANT [None]
